FAERS Safety Report 5163989-1 (Version None)
Quarter: 2006Q4

REPORT INFORMATION
  Report Type: 
  Country: None (occurrence: None)
  Receive Date: 20061204
  Receipt Date: 20061120
  Transmission Date: 20070319
  Serious: Yes (Other)
  Sender: FDA-Public Use
  Company Number: HQWYE334122NOV06

PATIENT
  Sex: Female

DRUGS (14)
  1. ENBREL [Suspect]
     Indication: RHEUMATOID ARTHRITIS
     Route: 058
     Dates: start: 20060307, end: 20060523
  2. ENBREL [Suspect]
     Route: 058
     Dates: start: 20060509, end: 20060523
  3. RIMATIL [Concomitant]
     Dosage: UNSPECIFIED
     Route: 048
  4. LOXONIN [Concomitant]
     Dosage: UNSPECIFIED
     Route: 048
  5. MUCOSTA [Concomitant]
     Dosage: UNSPECIFIED
     Route: 048
  6. HALCION [Concomitant]
     Dosage: UNSPECIFIED
  7. PHENOBARBITAL TAB [Concomitant]
     Dosage: UNSPECIFIED
     Route: 048
  8. GASTER [Concomitant]
     Dosage: UNSPECIFIED
     Route: 048
  9. PREDONINE [Concomitant]
     Dosage: UNSPECIFIED
     Route: 048
  10. DIAZEPAM [Concomitant]
     Dosage: UNSPECIFIED
     Route: 048
  11. NITRAZEPAM [Concomitant]
     Dosage: UNSPECIFIED
     Route: 048
  12. RISPERDAL [Concomitant]
     Dosage: UNSPECIFIED
     Route: 048
  13. SALAZOPYRIN [Concomitant]
     Dosage: UNSPECIFIED
     Route: 048
  14. ROHYPNOL [Concomitant]
     Dosage: UNSPECIFIED
     Route: 048

REACTIONS (2)
  - COLITIS ULCERATIVE [None]
  - CONDITION AGGRAVATED [None]
